FAERS Safety Report 7677345-5 (Version None)
Quarter: 2011Q3

REPORT INFORMATION
  Report Type: 
  Country: None (occurrence: None)
  Receive Date: 20110808
  Receipt Date: 20110727
  Transmission Date: 20111222
  Serious: Yes (Hospitalization)
  Sender: FDA-Public Use
  Company Number: TRP_07854_2011

PATIENT
  Age: 39 Year
  Sex: Male

DRUGS (3)
  1. RIBAVIRIN [Suspect]
     Indication: HEPATITIS C
     Dosage: 1000 MG, DAILY
     Dates: start: 20040901, end: 20050601
  2. PEGINTERFERON ALFA-2B (PEGYLATED ALPHA INTERFERON 2B) [Suspect]
     Indication: HEPATITIS C
     Dosage: 120 UG 1X/WEEK
     Dates: start: 20040901, end: 20050601
  3. ANTIHEMOPHILIC FACTOR (HUMAN) [Concomitant]

REACTIONS (19)
  - MALNUTRITION [None]
  - OSTEOPOROSIS [None]
  - HYPOPROTEINAEMIA [None]
  - WEIGHT DECREASED [None]
  - HYPOCOAGULABLE STATE [None]
  - ALANINE AMINOTRANSFERASE INCREASED [None]
  - VOMITING [None]
  - HAEMATOMA [None]
  - LEUKOPENIA [None]
  - HYPOALBUMINAEMIA [None]
  - DIARRHOEA [None]
  - ASPARTATE AMINOTRANSFERASE INCREASED [None]
  - FATIGUE [None]
  - COELIAC DISEASE [None]
  - HYPOKALAEMIA [None]
  - ABDOMINAL PAIN [None]
  - PYREXIA [None]
  - DECREASED APPETITE [None]
  - INTERNATIONAL NORMALISED RATIO INCREASED [None]
